FAERS Safety Report 18621552 (Version 1)
Quarter: 2020Q4

REPORT INFORMATION
  Report Type: Other
  Country: DE (occurrence: DE)
  Receive Date: 20201215
  Receipt Date: 20201215
  Transmission Date: 20210114
  Serious: Yes (Hospitalization)
  Sender: FDA-Public Use
  Company Number: DE-B.BRAUN MEDICAL INC.-2103027

PATIENT
  Age: 81 Year
  Sex: Male

DRUGS (6)
  1. NORADRENALINE [Concomitant]
     Active Substance: NOREPINEPHRINE
  2. SUFENTANIL CITRATE. [Concomitant]
     Active Substance: SUFENTANIL CITRATE
  3. ADRENALINE [Concomitant]
     Active Substance: EPINEPHRINE
  4. MIDAZOLAM. [Concomitant]
     Active Substance: MIDAZOLAM
  5. PROPOFOL. [Concomitant]
     Active Substance: PROPOFOL
  6. HEPARIN SODIUM IN DEXTROSE [Suspect]
     Active Substance: HEPARIN SODIUM

REACTIONS (1)
  - Disseminated intravascular coagulation [None]
